FAERS Safety Report 9421768 (Version 1)
Quarter: 2013Q3

REPORT INFORMATION
  Report Type: Spontaneous
  Country: AU (occurrence: AU)
  Receive Date: 20130726
  Receipt Date: 20130726
  Transmission Date: 20140515
  Serious: Yes (Death)
  Sender: FDA-Public Use
  Company Number: AU-ASTRAZENECA-2013SE56043

PATIENT
  Age: 5 Month
  Sex: 0

DRUGS (2)
  1. SEROQUEL [Suspect]
     Route: 064
  2. LEXAPRO [Suspect]
     Route: 064

REACTIONS (7)
  - Foetal exposure during pregnancy [Fatal]
  - Microencephaly [Fatal]
  - Premature delivery [Fatal]
  - Necrotising enterocolitis neonatal [Fatal]
  - Peritoneal haemorrhage [Fatal]
  - Peritonitis [Fatal]
  - Escherichia sepsis [Fatal]
